FAERS Safety Report 8789364 (Version 1)
Quarter: 2012Q4

REPORT INFORMATION
  Report Type: Spontaneous
  Country: US (occurrence: None)
  Receive Date: 20120910
  Receipt Date: 20120910
  Transmission Date: 20130627
  Serious: Yes (Hospitalization)
  Sender: FDA-Public Use
  Company Number: None

PATIENT
  Age: 62 Year
  Sex: Female
  Weight: 46.27 kg

DRUGS (20)
  1. OXALIPLATIN [Suspect]
     Dosage: 65mg/m2 (all Q2Wks)
     Dates: start: 20120816
  2. OXALIPLATIN [Suspect]
     Dates: start: 20120802
  3. OXALIPLATIN [Suspect]
     Dates: start: 20120719
  4. OXALIPLATIN [Suspect]
     Dates: start: 20120621
  5. OXALIPLATIN [Suspect]
     Dates: start: 20120602
  6. AVASTIN [Suspect]
     Dosage: 5mg/m2 (all Q2wks)
     Dates: start: 20120816
  7. AVASTIN [Suspect]
     Dates: start: 20120802
  8. AVASTIN [Suspect]
     Dates: start: 20120719
  9. AVASTIN [Suspect]
     Dates: start: 20120621
  10. AVASTIN [Suspect]
     Dates: start: 20120602
  11. 5 FU [Suspect]
     Dosage: 20m/m2 (all Q2wks)
     Dates: start: 20120816
  12. 5 FU [Suspect]
     Dates: start: 20120802
  13. 5 FU [Suspect]
     Dates: start: 20120719
  14. 5 FU [Suspect]
     Dates: start: 20120621
  15. 5 FU [Suspect]
     Dates: start: 20120602
  16. LEUCOVORIN [Suspect]
     Dosage: 400mg/m2 (all Q2wks)
     Dates: start: 20120816
  17. LEUCOVORIN [Suspect]
     Dates: start: 20120802
  18. LEUCOVORIN [Suspect]
     Dates: start: 20120719
  19. LEUCOVORIN [Suspect]
     Dates: start: 20120621
  20. LEUCOVORIN [Suspect]
     Dates: start: 20120602

REACTIONS (3)
  - Diarrhoea [None]
  - Hypotension [None]
  - Dehydration [None]
